FAERS Safety Report 21662569 (Version 1)
Quarter: 2022Q4

REPORT INFORMATION
  Report Type: Spontaneous
  Country: US (occurrence: US)
  Receive Date: 20221130
  Receipt Date: 20221130
  Transmission Date: 20230113
  Serious: Yes (Other)
  Sender: FDA-Public Use
  Company Number: US-MYLANLABS-2022M1133992

PATIENT
  Age: 50 Year
  Sex: Female

DRUGS (12)
  1. VORICONAZOLE [Suspect]
     Active Substance: VORICONAZOLE
     Indication: Keratitis fungal
     Dosage: UNK
     Route: 061
  2. VORICONAZOLE [Suspect]
     Active Substance: VORICONAZOLE
     Indication: Fusarium infection
  3. VORICONAZOLE [Suspect]
     Active Substance: VORICONAZOLE
     Indication: Keratitis fungal
     Dosage: 200 MILLIGRAM, BID
     Route: 048
  4. VORICONAZOLE [Suspect]
     Active Substance: VORICONAZOLE
     Indication: Fusarium infection
  5. VORICONAZOLE [Suspect]
     Active Substance: VORICONAZOLE
     Indication: Keratitis fungal
     Dosage: UNK; AQUEOUS TAP
     Route: 031
  6. VORICONAZOLE [Suspect]
     Active Substance: VORICONAZOLE
     Indication: Fusarium infection
  7. NATAMYCIN [Suspect]
     Active Substance: NATAMYCIN
     Indication: Keratitis fungal
     Dosage: UNK
     Route: 061
  8. NATAMYCIN [Suspect]
     Active Substance: NATAMYCIN
     Indication: Fusarium infection
  9. AMPHOTERICIN B [Suspect]
     Active Substance: AMPHOTERICIN B
     Indication: Keratitis fungal
     Dosage: UNK
  10. AMPHOTERICIN B [Suspect]
     Active Substance: AMPHOTERICIN B
     Indication: Fusarium infection
  11. POSACONAZOLE [Concomitant]
     Active Substance: POSACONAZOLE
     Indication: Keratitis fungal
     Dosage: 600 MILLIGRAM, QD; DELAYED-RELEASE
     Route: 048
  12. POSACONAZOLE [Concomitant]
     Active Substance: POSACONAZOLE
     Indication: Fusarium infection
     Dosage: 300 MILLIGRAM, QD; DELAYED-RELEASE
     Route: 048

REACTIONS (1)
  - Treatment failure [Unknown]
